FAERS Safety Report 17582787 (Version 1)
Quarter: 2020Q1

REPORT INFORMATION
  Report Type: Spontaneous
  Country: SI (occurrence: SI)
  Receive Date: 20200325
  Receipt Date: 20200325
  Transmission Date: 20200409
  Serious: Yes (Other)
  Sender: FDA-Public Use
  Company Number: SI-ANIPHARMA-2020-SI-000001

PATIENT
  Age: 77 Year
  Sex: Male
  Weight: 77 kg

DRUGS (4)
  1. AMLODIPIN [Concomitant]
     Active Substance: AMLODIPINE BESYLATE
     Dosage: UNKNOWN
     Route: 065
  2. KALINOR /TR [Concomitant]
     Dosage: UNKNOWN
     Route: 065
  3. CASODEX [Suspect]
     Active Substance: BICALUTAMIDE
     Indication: PRODUCT USED FOR UNKNOWN INDICATION
     Dosage: 50 MG Q3D
     Route: 048
     Dates: start: 20200101, end: 202003
  4. SKOPRY [Concomitant]
     Dosage: UNKNOWN
     Route: 065

REACTIONS (3)
  - Pulse absent [Unknown]
  - Chest discomfort [Recovered/Resolved]
  - Off label use [Recovered/Resolved]

NARRATIVE: CASE EVENT DATE: 202001
